FAERS Safety Report 8758543 (Version 1)
Quarter: 2012Q4

REPORT INFORMATION
  Report Type: 
  Country: US (occurrence: US)
  Receive Date: 20120829
  Receipt Date: 20120829
  Transmission Date: 20130627
  Serious: No
  Sender: FDA-Public Use
  Company Number: US-GLAXOSMITHKLINE-A0945668A

PATIENT
  Age: 80 Year
  Sex: Male

DRUGS (1)
  1. ZOVIRAX [Suspect]
     Indication: ORAL HERPES
     Route: 061
     Dates: start: 2011

REACTIONS (2)
  - Incorrect route of drug administration [Recovered/Resolved]
  - No adverse event [Recovered/Resolved]
